FAERS Safety Report 24346330 (Version 2)
Quarter: 2024Q4

REPORT INFORMATION
  Report Type: Spontaneous
  Country: CA (occurrence: CA)
  Receive Date: 20240921
  Receipt Date: 20241002
  Transmission Date: 20250114
  Serious: Yes (Other)
  Sender: ROCHE
  Company Number: CA-002147023-NVSC2024CA185417

PATIENT
  Age: 41 Year
  Sex: Female

DRUGS (1)
  1. OMALIZUMAB [Suspect]
     Active Substance: OMALIZUMAB
     Indication: Chronic spontaneous urticaria
     Dosage: UNK
     Route: 065
     Dates: start: 202301

REACTIONS (3)
  - Chronic spontaneous urticaria [Unknown]
  - Angioedema [Unknown]
  - Therapeutic product effect incomplete [Unknown]
